FAERS Safety Report 9106913 (Version 1)
Quarter: 2013Q1

REPORT INFORMATION
  Report Type: Spontaneous
  Country: US (occurrence: US)
  Receive Date: 20130221
  Receipt Date: 20130221
  Transmission Date: 20140127
  Serious: No
  Sender: FDA-Public Use
  Company Number: US-B.I. PHARMACEUTICALS,INC./RIDGEFIELD-2013-BI-04119BP

PATIENT
  Sex: Male

DRUGS (2)
  1. JENTADUETO [Suspect]
     Indication: DIABETES MELLITUS
     Route: 048
     Dates: start: 201211
  2. HUMALOG INSULIN [Concomitant]
     Indication: DIABETES MELLITUS
     Route: 058

REACTIONS (1)
  - Blood glucose increased [Not Recovered/Not Resolved]
